FAERS Safety Report 8389765-4 (Version None)
Quarter: 2012Q2

REPORT INFORMATION
  Report Type: 
  Country: None (occurrence: None)
  Receive Date: 20120524
  Receipt Date: 20120524
  Transmission Date: 20120825
  Serious: Yes (Life-Threatening, Hospitalization, Other)
  Sender: FDA-Public Use
  Company Number: None

PATIENT
  Age: 73 Year
  Sex: Male
  Weight: 82.1 kg

DRUGS (1)
  1. VOTRIENT [Suspect]
     Indication: METASTATIC RENAL CELL CARCINOMA
     Dosage: 800 MG ONCE DAILY ORAL
     Route: 048
     Dates: start: 20120418, end: 20120515

REACTIONS (8)
  - VIITH NERVE PARALYSIS [None]
  - BLOOD PRESSURE SYSTOLIC INCREASED [None]
  - APHASIA [None]
  - MUSCULAR WEAKNESS [None]
  - ASTHENIA [None]
  - CONVULSION [None]
  - POSTERIOR REVERSIBLE ENCEPHALOPATHY SYNDROME [None]
  - MENTAL STATUS CHANGES [None]
